FAERS Safety Report 9540269 (Version 3)
Quarter: 2013Q4

REPORT INFORMATION
  Report Type: Report from Study
  Country: RO (occurrence: RO)
  Receive Date: 20130920
  Receipt Date: 20131004
  Transmission Date: 20140711
  Serious: Yes (Other)
  Sender: FDA-Public Use
  Company Number: RO-ROCHE-1261695

PATIENT
  Sex: 0

DRUGS (10)
  1. TOCILIZUMAB [Suspect]
     Indication: RHEUMATOID ARTHRITIS
     Dosage: DATE OF LAST DOSE PRIOR TO SAE: 17/JUL/2013
     Route: 042
  2. ISONIAZID [Suspect]
     Indication: LATENT TUBERCULOSIS
     Route: 048
     Dates: start: 20130430
  3. DICLOFENAC [Suspect]
     Indication: RHEUMATOID ARTHRITIS
     Dosage: AS REQUIRED
     Route: 048
     Dates: start: 20121003
  4. METHOTREXATE [Suspect]
     Indication: RHEUMATOID ARTHRITIS
     Route: 030
     Dates: start: 20121003
  5. SULFASALAZINE [Concomitant]
     Indication: RHEUMATOID ARTHRITIS
     Route: 048
     Dates: start: 20121003
  6. COAXIL [Concomitant]
     Indication: MAJOR DEPRESSION
     Route: 048
     Dates: start: 20130314
  7. RIVOTRIL [Concomitant]
     Indication: MAJOR DEPRESSION
     Route: 048
     Dates: start: 20130314
  8. LYRICA [Concomitant]
     Indication: MAJOR DEPRESSION
     Route: 048
     Dates: start: 20130314
  9. ENAP [Concomitant]
     Indication: HYPERTENSION
     Route: 048
     Dates: start: 2010
  10. FOLIC ACID [Concomitant]
     Route: 048
     Dates: start: 20121003

REACTIONS (1)
  - Alanine aminotransferase increased [Recovered/Resolved]
